FAERS Safety Report 4729312-9 (Version None)
Quarter: 2005Q3

REPORT INFORMATION
  Report Type: 
  Country: None (occurrence: None)
  Receive Date: 20050729
  Receipt Date: 20050719
  Transmission Date: 20060218
  Serious: Yes (Hospitalization, Other)
  Sender: FDA-Public Use
  Company Number: ZM-BRISTOL-MYERS SQUIBB COMPANY-13056726

PATIENT
  Age: 75 Year
  Sex: Male

DRUGS (1)
  1. ERBITUX [Suspect]
     Indication: COLON CANCER METASTATIC
     Dosage: 400 MG/M2.
     Route: 041
     Dates: start: 20050719, end: 20050719

REACTIONS (6)
  - ASTHENIA [None]
  - CHILLS [None]
  - CYANOSIS [None]
  - HYPERSENSITIVITY [None]
  - HYPERTENSION [None]
  - TACHYCARDIA [None]
